FAERS Safety Report 4536340-5 (Version None)
Quarter: 2004Q4

REPORT INFORMATION
  Report Type: 
  Country: None (occurrence: None)
  Receive Date: 20041223
  Receipt Date: 20040720
  Transmission Date: 20050328
  Serious: No
  Sender: FDA-Public Use
  Company Number: US-GLAXOSMITHKLINE-A0519163A

PATIENT
  Age: 61 Year
  Sex: Male
  Weight: 62.7 kg

DRUGS (1)
  1. FLONASE [Suspect]
     Indication: ILL-DEFINED DISORDER
     Dosage: 1SPR PER DAY
     Route: 045
     Dates: start: 20030201

REACTIONS (2)
  - CHEST PAIN [None]
  - FLATULENCE [None]
